FAERS Safety Report 5522095-4 (Version None)
Quarter: 2007Q4

REPORT INFORMATION
  Report Type: 
  Country: None (occurrence: None)
  Receive Date: 20071120
  Receipt Date: 20071109
  Transmission Date: 20080405
  Serious: Yes (Hospitalization)
  Sender: FDA-Public Use
  Company Number: CH-BRISTOL-MYERS SQUIBB COMPANY-13987136

PATIENT
  Age: 70 Year
  Sex: Male
  Weight: 80 kg

DRUGS (15)
  1. ERBITUX [Suspect]
     Indication: LARYNGEAL CANCER
     Route: 041
     Dates: start: 20070723, end: 20070906
  2. TOREM [Suspect]
     Route: 048
     Dates: end: 20070901
  3. RADIATION THERAPY [Suspect]
     Indication: LARYNGEAL CANCER
     Dates: start: 20070723, end: 20070906
  4. SIMVASTATIN [Concomitant]
     Indication: HYPERLIPIDAEMIA
     Dosage: DOSAGE FORM: TABLET
     Route: 048
  5. BISOPROLOL FUMARATE [Concomitant]
     Indication: MYOCARDIAL ISCHAEMIA
     Dosage: DOSAGE FORM: TABLET
     Route: 048
  6. ELTROXIN [Concomitant]
     Indication: HYPOTHYROIDISM
     Dosage: DOSAGE FORM: TABLET
     Route: 048
  7. STILNOX [Concomitant]
     Dosage: DOSAGE FORM: TABLET
     Route: 048
     Dates: end: 20070901
  8. NORVASC [Concomitant]
     Indication: MYOCARDIAL ISCHAEMIA
     Dosage: DOSAGE FORM: TABLET
     Route: 048
  9. RAMIPRIL [Concomitant]
     Indication: MYOCARDIAL ISCHAEMIA
     Dosage: DOSAGE FORM: TABLET
     Route: 048
  10. NEXIUM [Concomitant]
     Dosage: DOSAGE FORM: TABLET; 44.5 MG TABLET
     Route: 048
  11. DUPHALAC [Concomitant]
     Route: 048
     Dates: end: 20070901
  12. ZOFRAN [Concomitant]
     Dosage: DOSAGE FORM: COATED TABLET
     Route: 048
     Dates: end: 20070901
  13. SEROQUEL [Concomitant]
     Dosage: DOSAGE FORM: COATED TABLET
     Route: 048
  14. MARCUMAR [Concomitant]
     Indication: ATRIAL FLUTTER
     Dosage: DOSAGE FORM: TABLET
     Route: 048
  15. MARCUMAR [Concomitant]
     Indication: ATRIAL FIBRILLATION
     Dosage: DOSAGE FORM: TABLET
     Route: 048

REACTIONS (8)
  - DEHYDRATION [None]
  - DEPRESSED LEVEL OF CONSCIOUSNESS [None]
  - DERMATITIS [None]
  - HEPATOCELLULAR DAMAGE [None]
  - HYPOTENSION [None]
  - RADIATION MUCOSITIS [None]
  - RENAL FAILURE ACUTE [None]
  - SYSTEMIC INFLAMMATORY RESPONSE SYNDROME [None]
